FAERS Safety Report 13553664 (Version 3)
Quarter: 2017Q2

REPORT INFORMATION
  Report Type: Report from Study
  Country: US (occurrence: US)
  Receive Date: 20170517
  Receipt Date: 20170628
  Transmission Date: 20170830
  Serious: Yes (Hospitalization, Other)
  Sender: FDA-Public Use
  Company Number: US-PFIZER INC-2017215220

PATIENT
  Age: 40 Year
  Sex: Male

DRUGS (2)
  1. PROPOFOL. [Suspect]
     Active Substance: PROPOFOL
     Dosage: UNK
     Route: 041
     Dates: start: 20160828
  2. VALPROIC ACID. [Interacting]
     Active Substance: VALPROIC ACID
     Dosage: 3 G, DAILY
     Dates: start: 20160826

REACTIONS (3)
  - Drug interaction [Unknown]
  - Drug level changed [Unknown]
  - Thrombocytopenia [Unknown]
